FAERS Safety Report 9512766 (Version 2)
Quarter: 2013Q3

REPORT INFORMATION
  Report Type: Spontaneous
  Country: US (occurrence: US)
  Receive Date: 20130910
  Receipt Date: 20130910
  Transmission Date: 20140515
  Serious: Yes (Other)
  Sender: FDA-Public Use
  Company Number: US-ASTELLAS-2013US007919

PATIENT
  Age: 82 Year
  Sex: Male

DRUGS (1)
  1. XTANDI [Suspect]
     Indication: PROSTATE CANCER
     Dosage: 160 MG, UID/QD
     Route: 048
     Dates: start: 20130506

REACTIONS (6)
  - Hepatic enzyme increased [Unknown]
  - Decreased appetite [Unknown]
  - Metastases to liver [Unknown]
  - Metastases to abdominal cavity [Unknown]
  - Metastases to bone [Unknown]
  - Malignant neoplasm progression [Unknown]
